FAERS Safety Report 20573075 (Version 2)
Quarter: 2022Q2

REPORT INFORMATION
  Report Type: Spontaneous
  Country: US (occurrence: US)
  Receive Date: 20220309
  Receipt Date: 20220420
  Transmission Date: 20220721
  Serious: Yes (Other)
  Sender: FDA-Public Use
  Company Number: US-BAYER-2022A033114

PATIENT
  Age: 31 Year
  Sex: Female
  Weight: 69.4 kg

DRUGS (1)
  1. MIRENA [Suspect]
     Active Substance: LEVONORGESTREL
     Indication: Contraception
     Dosage: 20?G/DAY
     Route: 015
     Dates: start: 20220303, end: 20220303

REACTIONS (3)
  - Uterine perforation [Recovered/Resolved]
  - Complication of device insertion [None]
  - Device difficult to use [Recovered/Resolved]

NARRATIVE: CASE EVENT DATE: 20220303
